FAERS Safety Report 18731724 (Version 4)
Quarter: 2021Q1

REPORT INFORMATION
  Report Type: Spontaneous
  Country: US (occurrence: US)
  Receive Date: 20210112
  Receipt Date: 20210302
  Transmission Date: 20210419
  Serious: Yes (Hospitalization, Other)
  Sender: FDA-Public Use
  Company Number: US-009507513-2101USA001984

PATIENT
  Age: 61 Year
  Sex: Female

DRUGS (3)
  1. KEYTRUDA [Suspect]
     Active Substance: PEMBROLIZUMAB
     Dosage: EVERY 3 WEEKS (Q3W)
     Route: 042
     Dates: end: 20210129
  2. VITAMIN B COMPLEX [Concomitant]
     Active Substance: CYANOCOBALAMIN\DEXPANTHENOL\NIACINAMIDE\PYRIDOXINE HYDROCHLORIDE\RIBOFLAVIN 5^-PHOSPHATE SODIUM\THIAMINE HYDROCHLORIDE\VITAMIN B COMPLEX
     Indication: ALOPECIA
  3. KEYTRUDA [Suspect]
     Active Substance: PEMBROLIZUMAB
     Indication: NON-SMALL CELL LUNG CANCER
     Dosage: EVERY 3 WEEKS (Q3W)
     Route: 042
     Dates: start: 20171117

REACTIONS (16)
  - Illness [Recovering/Resolving]
  - Fatigue [Unknown]
  - Pulmonary embolism [Unknown]
  - COVID-19 [Recovering/Resolving]
  - Cognitive disorder [Unknown]
  - Speech disorder [Unknown]
  - Food craving [Recovered/Resolved]
  - Hepatic steatosis [Unknown]
  - Alopecia [Recovered/Resolved]
  - Hepatic enzyme abnormal [Unknown]
  - Product dose omission issue [Unknown]
  - Dysphonia [Unknown]
  - Pulmonary mass [Unknown]
  - Dyspnoea [Unknown]
  - Pruritus [Unknown]
  - Pleural effusion [Recovered/Resolved]

NARRATIVE: CASE EVENT DATE: 201712
